FAERS Safety Report 13088484 (Version 1)
Quarter: 2017Q1

REPORT INFORMATION
  Report Type: Spontaneous
  Country: GB (occurrence: GB)
  Receive Date: 20170105
  Receipt Date: 20170105
  Transmission Date: 20170428
  Serious: Yes (Other)
  Sender: FDA-Public Use
  Company Number: GB-PFIZER INC-2017001723

PATIENT
  Age: 30 Year
  Sex: Female
  Weight: 87 kg

DRUGS (1)
  1. ATRACURIUM BESILATE [Suspect]
     Active Substance: ATRACURIUM BESYLATE
     Indication: GENERAL ANAESTHESIA
     Dosage: 35 MG, UNK
     Route: 042
     Dates: start: 20161026, end: 20161026

REACTIONS (2)
  - Administration site urticaria [Recovered/Resolved]
  - Wheezing [Recovered/Resolved]

NARRATIVE: CASE EVENT DATE: 20161026
